FAERS Safety Report 6705015-6 (Version None)
Quarter: 2010Q2

REPORT INFORMATION
  Report Type: 
  Country: None (occurrence: None)
  Receive Date: 20100430
  Receipt Date: 20100430
  Transmission Date: 20101027
  Serious: Yes (Death, Hospitalization)
  Sender: FDA-Public Use
  Company Number: A0857338A

PATIENT
  Sex: Female

DRUGS (10)
  1. AVANDIA [Suspect]
     Dosage: 8MG PER DAY
     Route: 048
     Dates: end: 20000101
  2. ALDACTONE [Concomitant]
  3. ATENOLOL [Concomitant]
  4. ATACAND [Concomitant]
  5. LASIX [Concomitant]
  6. CLONIDINE [Concomitant]
  7. IMDUR [Concomitant]
  8. PRAZOSIN HCL [Concomitant]
  9. PROZAC [Concomitant]
  10. LANOXIN [Concomitant]

REACTIONS (8)
  - AORTIC VALVE SCLEROSIS [None]
  - BRADYCARDIA [None]
  - CARDIAC ARREST [None]
  - CARDIAC FAILURE CONGESTIVE [None]
  - CEREBROVASCULAR ACCIDENT [None]
  - ISCHAEMIC CARDIOMYOPATHY [None]
  - PULMONARY OEDEMA [None]
  - RENAL FAILURE [None]
